FAERS Safety Report 6435646-2 (Version None)
Quarter: 2009Q4

REPORT INFORMATION
  Report Type: 
  Country: None (occurrence: None)
  Receive Date: 20091110
  Receipt Date: 20080815
  Transmission Date: 20100525
  Serious: No
  Sender: FDA-Public Use
  Company Number: AECAN200800176

PATIENT
  Age: 60 Year
  Sex: Male

DRUGS (1)
  1. GAMUNEX [Suspect]
     Indication: GUILLAIN-BARRE SYNDROME
     Dosage: 200 GM;TOTAL;IV
     Route: 042

REACTIONS (1)
  - HAEMOLYSIS [None]
